FAERS Safety Report 8494974-X (Version None)
Quarter: 2012Q3

REPORT INFORMATION
  Report Type: 
  Country: None (occurrence: None)
  Receive Date: 20120709
  Receipt Date: 20120628
  Transmission Date: 20120928
  Serious: Yes (Other)
  Sender: FDA-Public Use
  Company Number: TW-BRISTOL-MYERS SQUIBB COMPANY-16743387

PATIENT
  Age: 85 Year
  Sex: Male

DRUGS (1)
  1. MITOMYCIN [Suspect]
     Indication: BLADDER CANCER
     Dosage: INJ
     Route: 043
     Dates: start: 20100430, end: 20110923

REACTIONS (4)
  - DYSPNOEA [None]
  - PRURITUS [None]
  - PYREXIA [None]
  - TACHYCARDIA [None]
